FAERS Safety Report 19532813 (Version 1)
Quarter: 2021Q3

REPORT INFORMATION
  Report Type: Spontaneous
  Country: US (occurrence: US)
  Receive Date: 20210713
  Receipt Date: 20210713
  Transmission Date: 20211014
  Serious: No
  Sender: FDA-Public Use
  Company Number: US-BAYER-2021-166203

PATIENT
  Sex: Female

DRUGS (2)
  1. ALEVE [Suspect]
     Active Substance: NAPROXEN SODIUM
     Indication: PAIN
     Dosage: 1 DF, Q1MON
     Route: 048
     Dates: start: 1992
  2. ALEVE [Suspect]
     Active Substance: NAPROXEN SODIUM
     Indication: DYSMENORRHOEA

REACTIONS (2)
  - Product use issue [Unknown]
  - Therapeutic product effect incomplete [Unknown]
